FAERS Safety Report 23148981 (Version 3)
Quarter: 2023Q4

REPORT INFORMATION
  Report Type: Spontaneous
  Country: US (occurrence: US)
  Receive Date: 20231106
  Receipt Date: 20231213
  Transmission Date: 20240110
  Serious: No
  Sender: FDA-Public Use
  Company Number: US-PFIZER INC-202300328117

PATIENT
  Age: 5 Year
  Sex: Male
  Weight: 19.05 kg

DRUGS (1)
  1. GENOTROPIN [Suspect]
     Active Substance: SOMATROPIN
     Indication: Silver-Russell syndrome
     Dosage: 0.6 MG, DAILY

REACTIONS (5)
  - Off label use [Unknown]
  - Drug dose omission by device [Unknown]
  - Device failure [Unknown]
  - Device malfunction [Unknown]
  - Device issue [Unknown]
